FAERS Safety Report 5009112-5 (Version None)
Quarter: 2006Q2

REPORT INFORMATION
  Report Type: 
  Country: None (occurrence: None)
  Receive Date: 20060516
  Receipt Date: 20060510
  Transmission Date: 20061013
  Serious: Yes (Hospitalization, Other)
  Sender: FDA-Public Use
  Company Number: HQWYE677106APR06

PATIENT
  Age: 85 Year
  Sex: Male

DRUGS (8)
  1. ETODOLAC [Suspect]
     Indication: PAIN
     Dosage: 200 MG 2X PER 1 DAY ORAL
     Route: 048
     Dates: start: 20060107, end: 20060315
  2. ASPIRIN [Suspect]
     Indication: ANTICOAGULANT THERAPY
     Dosage: 100 MG 1X PER 1 DAY ORAL
     Route: 048
     Dates: start: 20060107, end: 20060315
  3. ETHINYL ESTRADIOL TAB [Suspect]
     Indication: PROSTATE CANCER
     Dosage: 1.5 MG 1X PER 1 DAY ORAL
     Route: 048
  4. PROPIVERINE HYDROCHLORIDE (PROPIVERINE HYDROCHLORIDE,) [Suspect]
     Indication: PROSTATE CANCER
     Dosage: 20 MG 1X PER 1 DAY ORAL
     Route: 048
  5. TOSUFLOXACIN TOSILATE (TOSUFLOXACIN TOSILATE,) [Suspect]
     Indication: PROSTATE CANCER
     Dosage: 150 MG 1X PER 1 DAY ORAL
     Route: 048
  6. FAMOTIDINE [Concomitant]
  7. BROTIZOLAM (BROTIZOLAM) [Concomitant]
  8. CANDESARTAN CILEXETIL (CANDESARTAN CILEXETIL) [Concomitant]

REACTIONS (2)
  - GASTRIC ULCER HAEMORRHAGE [None]
  - HYPOTENSION [None]
